FAERS Safety Report 14823732 (Version 1)
Quarter: 2018Q2

REPORT INFORMATION
  Report Type: Spontaneous
  Country: US (occurrence: US)
  Receive Date: 20180428
  Receipt Date: 20180428
  Transmission Date: 20180711
  Serious: No
  Sender: FDA-Public Use
  Company Number: US-TEVA-2018-US-870474

PATIENT
  Age: 17 Year
  Sex: Female

DRUGS (1)
  1. TRINESSA LO [Suspect]
     Active Substance: ETHINYL ESTRADIOL\NORGESTIMATE
     Indication: ACNE
     Dosage: DOSE STRENGTH:  .18;.215;.25/.025MG

REACTIONS (3)
  - Acne [Not Recovered/Not Resolved]
  - Emotional disorder [Unknown]
  - Menorrhagia [Recovered/Resolved]
